FAERS Safety Report 9674514 (Version 2)
Quarter: 2014Q2

REPORT INFORMATION
  Report Type: Spontaneous
  Country: US (occurrence: US)
  Receive Date: 20131107
  Receipt Date: 20140512
  Transmission Date: 20141212
  Serious: Yes (Death)
  Sender: FDA-Public Use
  Company Number: US-BRISTOL-MYERS SQUIBB COMPANY-19749381

PATIENT
  Age: 75 Year
  Sex: Male
  Weight: 63.49 kg

DRUGS (3)
  1. BYETTA [Suspect]
     Indication: TYPE 2 DIABETES MELLITUS
     Route: 058
  2. JANUVIA [Suspect]
  3. METFORMIN HCL + GLIPIZIDE [Suspect]

REACTIONS (1)
  - Oesophageal carcinoma [Fatal]
